FAERS Safety Report 6374790-5 (Version None)
Quarter: 2009Q3

REPORT INFORMATION
  Report Type: 
  Country: None (occurrence: None)
  Receive Date: 20090924
  Receipt Date: 20090921
  Transmission Date: 20100115
  Serious: Yes (Death)
  Sender: FDA-Public Use
  Company Number: PHEH2009US11385

PATIENT
  Sex: Female

DRUGS (2)
  1. RECLAST [Suspect]
     Indication: OSTEOPOROSIS
     Dosage: UNK, UNK
     Dates: start: 20080131, end: 20080131
  2. RECLAST [Suspect]
     Dosage: UNK, UNK
     Dates: start: 20090106, end: 20090106

REACTIONS (1)
  - DEATH [None]
